FAERS Safety Report 8193722 (Version 2)
Quarter: 2012Q4

REPORT INFORMATION
  Report Type: Report from Study
  Country: CA (occurrence: CA)
  Receive Date: 20111021
  Receipt Date: 20120919
  Transmission Date: 20130627
  Serious: Yes (Death)
  Sender: FDA-Public Use
  Company Number: CA-ROCHE-1005621

PATIENT
  Age: 64 None
  Sex: Female
  Weight: 74.46 kg

DRUGS (4)
  1. AVASTIN [Suspect]
     Indication: OVARIAN CANCER
     Route: 042
     Dates: start: 20110324, end: 20110907
  2. SOLU-MEDROL [Concomitant]
     Route: 065
  3. MAXERAN [Concomitant]
     Route: 065
  4. ZEPHIRAN [Concomitant]
     Route: 065

REACTIONS (1)
  - Disease progression [Fatal]
